FAERS Safety Report 5303593-5 (Version None)
Quarter: 2007Q2

REPORT INFORMATION
  Report Type: 
  Country: None (occurrence: None)
  Receive Date: 20070420
  Receipt Date: 20070409
  Transmission Date: 20071010
  Serious: Yes (Other)
  Sender: FDA-Public Use
  Company Number: GR-PFIZER INC-2007028110

PATIENT

DRUGS (2)
  1. LATANOPROST [Suspect]
     Indication: GLAUCOMA
     Route: 047
  2. TRAVOPROST [Suspect]
     Indication: GLAUCOMA
     Route: 047

REACTIONS (1)
  - PUNCTATE KERATITIS [None]
